FAERS Safety Report 10921420 (Version 1)
Quarter: 2015Q1

REPORT INFORMATION
  Report Type: Spontaneous
  Country: NL (occurrence: NL)
  Receive Date: 20150317
  Receipt Date: 20150317
  Transmission Date: 20150721
  Serious: Yes (Disabling)
  Sender: FDA-Public Use
  Company Number: NL-SA-2015SA030665

PATIENT
  Age: 39 Year
  Sex: Female

DRUGS (3)
  1. AUBAGIO [Suspect]
     Active Substance: TERIFLUNOMIDE
     Indication: MULTIPLE SCLEROSIS
     Route: 048
     Dates: start: 201411
  2. YAZ [Concomitant]
     Active Substance: DROSPIRENONE\ETHINYL ESTRADIOL
     Indication: PREMENSTRUAL SYNDROME
     Dosage: YAZ 24+4 TABLET FILMOMHULD
     Route: 048
  3. LOSFERRON BRUISTABLET [Concomitant]
     Dosage: 1DD1?STRENGTH: 695 MG BRUISTABLET
     Route: 048

REACTIONS (7)
  - Diarrhoea [Recovering/Resolving]
  - Eye inflammation [Unknown]
  - Ear infection [Unknown]
  - Pharyngitis [Unknown]
  - Decreased appetite [Recovering/Resolving]
  - Sinusitis [Unknown]
  - Parosmia [Recovering/Resolving]

NARRATIVE: CASE EVENT DATE: 201411
